FAERS Safety Report 16734797 (Version 2)
Quarter: 2019Q3

REPORT INFORMATION
  Report Type: Report from Study
  Country: PT (occurrence: PT)
  Receive Date: 20190823
  Receipt Date: 20190909
  Transmission Date: 20191005
  Serious: Yes (Other)
  Sender: FDA-Public Use
  Company Number: PT-BEH-2019105878

PATIENT

DRUGS (2)
  1. FACTOR VIII RECOMBINANT (NON-COMPANY) [Suspect]
     Active Substance: ANTIHEMOPHILIC FACTOR, HUMAN RECOMBINANT
     Indication: PROPHYLAXIS
  2. FACTOR VIII RECOMBINANT (NON-COMPANY) [Suspect]
     Active Substance: ANTIHEMOPHILIC FACTOR, HUMAN RECOMBINANT
     Indication: FACTOR VIII DEFICIENCY
     Dosage: UNK, QW (LOSE DOSE)
     Route: 065

REACTIONS (1)
  - Anti factor VIII antibody positive [Unknown]
